FAERS Safety Report 7389551-8 (Version None)
Quarter: 2011Q2

REPORT INFORMATION
  Report Type: 
  Country: None (occurrence: None)
  Receive Date: 20110401
  Receipt Date: 20110322
  Transmission Date: 20111010
  Serious: Yes (Hospitalization, Other)
  Sender: FDA-Public Use
  Company Number: PHHY2009CA42100

PATIENT
  Sex: Male

DRUGS (1)
  1. SANDOSTATIN LAR [Suspect]
     Indication: HEPATIC NEOPLASM MALIGNANT
     Dosage: 20 MG EVERY 4 WEEKS
     Route: 030
     Dates: start: 20070327

REACTIONS (7)
  - PAINFUL DEFAECATION [None]
  - GASTROINTESTINAL HYPOMOTILITY [None]
  - ABDOMINAL DISTENSION [None]
  - PYREXIA [None]
  - BLOOD URINE PRESENT [None]
  - BLOOD PRESSURE INCREASED [None]
  - WEIGHT DECREASED [None]
